FAERS Safety Report 7943860-X (Version None)
Quarter: 2011Q4

REPORT INFORMATION
  Report Type: 
  Country: None (occurrence: None)
  Receive Date: 20111128
  Receipt Date: 20111117
  Transmission Date: 20120403
  Serious: Yes (Other)
  Sender: FDA-Public Use
  Company Number: US-ASTRAZENECA-2009SE19292

PATIENT
  Age: 54 Year
  Sex: Female

DRUGS (7)
  1. SEROQUEL XR [Suspect]
     Indication: BIPOLAR DISORDER
     Route: 048
     Dates: start: 20080101
  2. SEROQUEL XR [Suspect]
     Dosage: SHE GOT SAMPLE OF 150 MG+300 MG
     Route: 048
  3. SEROQUEL XR [Suspect]
     Indication: STEVENS-JOHNSON SYNDROME
     Route: 048
     Dates: start: 20080101
  4. LISINOPRIL [Concomitant]
  5. VEGRA [Concomitant]
  6. SEROQUEL XR [Suspect]
     Dosage: SHE GOT SAMPLE OF 150 MG+300 MG
     Route: 048
  7. CLONIPINE [Concomitant]
     Indication: PANIC DISORDER

REACTIONS (15)
  - CONVULSION [None]
  - DRUG DOSE OMISSION [None]
  - FEELING ABNORMAL [None]
  - ABNORMAL BEHAVIOUR [None]
  - FATIGUE [None]
  - DEPRESSION [None]
  - MANIA [None]
  - DRUG INEFFECTIVE [None]
  - OFF LABEL USE [None]
  - SOMNOLENCE [None]
  - SUICIDAL IDEATION [None]
  - MENTAL IMPAIRMENT [None]
  - PHOBIA [None]
  - DECREASED APPETITE [None]
  - INSOMNIA [None]
